FAERS Safety Report 5165555-0 (Version None)
Quarter: 2006Q4

REPORT INFORMATION
  Report Type: 
  Country: None (occurrence: None)
  Receive Date: 20061124
  Receipt Date: 20061109
  Transmission Date: 20070319
  Serious: Yes (Death)
  Sender: FDA-Public Use
  Company Number: 2006138288

PATIENT
  Age: 78 Year
  Sex: Male

DRUGS (2)
  1. VFEND [Suspect]
     Indication: ASPERGILLOSIS
     Dosage: INTRAVENOUS
     Route: 042
  2. CANCIDAS [Suspect]
     Indication: ASPERGILLOSIS

REACTIONS (2)
  - DRUG INEFFECTIVE [None]
  - SMALL INTESTINAL STENOSIS [None]
